FAERS Safety Report 13579268 (Version 2)
Quarter: 2018Q1

REPORT INFORMATION
  Report Type: Spontaneous
  Country: GB (occurrence: GB)
  Receive Date: 20170523
  Receipt Date: 20180117
  Transmission Date: 20180508
  Serious: Yes (Hospitalization, Other)
  Sender: FDA-Public Use
  Company Number: GB-MICRO LABS LIMITED-BB2017-00680

PATIENT
  Age: 20 Year
  Sex: Female

DRUGS (2)
  1. AMOXICILLIN/CLAVULANIC ACID [Suspect]
     Active Substance: AMOXICILLIN\CLAVULANIC ACID
     Indication: MASTOIDITIS
     Dosage: CHANGED TO ORAL CO-AMOXICLAV IN HOSPITAL.
     Route: 048
  2. CO-AMOXICLAV [Suspect]
     Active Substance: AMOXICILLIN\CLAVULANIC ACID
     Indication: MASTOIDITIS
     Dosage: HAD HER DOSE INCREASED FROM 2-3 (TIMES PER DAY. DON^T KNOW DOSAGE).
     Route: 042
     Dates: start: 20170424, end: 20170428

REACTIONS (23)
  - Musculoskeletal pain [Recovered/Resolved]
  - Pallor [Unknown]
  - Trismus [Recovered/Resolved]
  - Burning sensation [Recovered/Resolved]
  - Confusional state [Recovered/Resolved]
  - Seizure [Recovered/Resolved]
  - Nausea [Recovered/Resolved]
  - Vomiting [Recovered/Resolved]
  - Muscle twitching [Recovered/Resolved]
  - Speech disorder [Recovered/Resolved]
  - Hypervigilance [Recovered/Resolved]
  - Throat irritation [Recovered/Resolved]
  - Ear pain [Recovered/Resolved]
  - Muscle spasms [Recovered/Resolved with Sequelae]
  - Pharyngeal erythema [Recovered/Resolved]
  - Vision blurred [Recovered/Resolved]
  - Headache [Recovered/Resolved]
  - Feeling abnormal [Recovered/Resolved]
  - Retching [Recovered/Resolved]
  - Pharyngeal oedema [Recovered/Resolved]
  - Dry throat [Recovered/Resolved]
  - Blepharospasm [Recovered/Resolved]
  - Dizziness [Recovered/Resolved]

NARRATIVE: CASE EVENT DATE: 20170426
